FAERS Safety Report 4866150-0 (Version None)
Quarter: 2005Q4

REPORT INFORMATION
  Report Type: 
  Country: None (occurrence: None)
  Receive Date: 20051227
  Receipt Date: 20051216
  Transmission Date: 20060501
  Serious: Yes (Other)
  Sender: FDA-Public Use
  Company Number: ES-JNJFOC-20051103720

PATIENT
  Age: 61 Year
  Sex: Female

DRUGS (3)
  1. INFLIXIMAB [Suspect]
     Indication: RHEUMATOID ARTHRITIS
     Route: 042
  2. METHOTREXATE [Concomitant]
     Indication: RHEUMATOID ARTHRITIS
  3. PREDNISONE 50MG TAB [Concomitant]
     Indication: RHEUMATOID ARTHRITIS
     Dosage: 4-8 MG DAILY

REACTIONS (7)
  - AREFLEXIA [None]
  - ASTHENIA [None]
  - CENTRAL NERVOUS SYSTEM INFLAMMATION [None]
  - DEMYELINATION [None]
  - DYSAESTHESIA [None]
  - HERPES ZOSTER [None]
  - MYELITIS [None]
